FAERS Safety Report 23961697 (Version 1)
Quarter: 2024Q2

REPORT INFORMATION
  Report Type: Spontaneous
  Country: US (occurrence: None)
  Receive Date: 20240610
  Receipt Date: 20240610
  Transmission Date: 20240716
  Serious: Yes (Disabling, Other)
  Sender: FDA-Public Use
  Company Number: None

PATIENT
  Age: 29 Year
  Sex: Female
  Weight: 51.75 kg

DRUGS (7)
  1. WELLBUTRIN [Suspect]
     Active Substance: BUPROPION HYDROCHLORIDE
  2. BUSPAR [Suspect]
     Active Substance: BUSPIRONE HYDROCHLORIDE
  3. ZYRTEC [Concomitant]
     Active Substance: CETIRIZINE HYDROCHLORIDE
  4. vitamin D [Concomitant]
  5. multi vitamin [Concomitant]
  6. FISH OIL [Concomitant]
  7. turmeric [Concomitant]

REACTIONS (3)
  - Hypotension [None]
  - Hyperhidrosis [None]
  - Dyspnoea [None]
